FAERS Safety Report 10054027 (Version 2)
Quarter: 2014Q2

REPORT INFORMATION
  Report Type: Spontaneous
  Country: US (occurrence: US)
  Receive Date: 20140402
  Receipt Date: 20140410
  Transmission Date: 20141212
  Serious: Yes (Other)
  Sender: FDA-Public Use
  Company Number: US-PFIZER INC-2014090756

PATIENT
  Age: 52 Year
  Sex: Male

DRUGS (1)
  1. LYRICA [Suspect]
     Indication: NEURALGIA
     Dosage: UNK

REACTIONS (6)
  - Foot fracture [Unknown]
  - Cough [Unknown]
  - Hypersensitivity [Unknown]
  - Drug ineffective [Unknown]
  - Weight increased [Unknown]
  - Intentional product misuse [Unknown]
